FAERS Safety Report 18373417 (Version 1)
Quarter: 2020Q4

REPORT INFORMATION
  Report Type: Spontaneous
  Country: US (occurrence: US)
  Receive Date: 20201012
  Receipt Date: 20201012
  Transmission Date: 20210114
  Serious: Yes (Hospitalization)
  Sender: FDA-Public Use
  Company Number: US-PFIZER INC-2020379355

PATIENT
  Age: 84 Year
  Sex: Female
  Weight: 71.21 kg

DRUGS (2)
  1. XELJANZ [Suspect]
     Active Substance: TOFACITINIB CITRATE
     Indication: RHEUMATOID ARTHRITIS
     Dosage: 5 MG, 2X/DAY
     Route: 048
     Dates: start: 20200923
  2. XELJANZ [Suspect]
     Active Substance: TOFACITINIB CITRATE
     Dosage: 2 DF (2 TABS THAT GETS CLOSE TO THE ACTUAL DOSE)

REACTIONS (5)
  - Arthralgia [Unknown]
  - Pain [Unknown]
  - Drug ineffective [Unknown]
  - Condition aggravated [Unknown]
  - Hypoacusis [Unknown]
